FAERS Safety Report 19167084 (Version 1)
Quarter: 2021Q2

REPORT INFORMATION
  Report Type: Spontaneous
  Country: US (occurrence: US)
  Receive Date: 20210420
  Receipt Date: 20210420
  Transmission Date: 20210717
  Serious: Yes (Other)
  Sender: FDA-Public Use
  Company Number: None

PATIENT
  Age: 75 Year
  Sex: Male
  Weight: 96.75 kg

DRUGS (15)
  1. 81MG ASPIRIN [Concomitant]
  2. VITAMIN C [Concomitant]
     Active Substance: ASCORBIC ACID
  3. BACLOFEN 10MG. [Suspect]
     Active Substance: BACLOFEN
     Indication: MOVEMENT DISORDER
     Dosage: ?          QUANTITY:1 DF DOSAGE FORM;?
     Route: 048
     Dates: start: 20210414, end: 20210420
  4. ISOSORBIDE MONONITRATE. [Concomitant]
     Active Substance: ISOSORBIDE MONONITRATE
  5. PROBIOTICS [Concomitant]
     Active Substance: PROBIOTICS NOS
  6. MULTIVITAMIN [Concomitant]
     Active Substance: VITAMINS
  7. METOPROLOL SUCCINATE. [Concomitant]
     Active Substance: METOPROLOL SUCCINATE
  8. VIT. D [Concomitant]
     Active Substance: VITAMIN D NOS
  9. GUAIFENESIN. [Concomitant]
     Active Substance: GUAIFENESIN
  10. LATANOPROST. [Concomitant]
     Active Substance: LATANOPROST
  11. FOLATE [Concomitant]
     Active Substance: FOLATE SODIUM
  12. BACLOFEN 10MG. [Suspect]
     Active Substance: BACLOFEN
     Indication: RESTLESS LEGS SYNDROME
     Dosage: ?          QUANTITY:1 DF DOSAGE FORM;?
     Route: 048
     Dates: start: 20210414, end: 20210420
  13. IRON [Concomitant]
     Active Substance: IRON
  14. MAGNESIUM [Concomitant]
     Active Substance: MAGNESIUM
  15. ZETIA [Concomitant]
     Active Substance: EZETIMIBE

REACTIONS (8)
  - Pain in extremity [None]
  - Depressed level of consciousness [None]
  - Speech disorder [None]
  - Muscle twitching [None]
  - Confusional state [None]
  - Dyspnoea [None]
  - Muscle spasms [None]
  - Adjustment disorder with depressed mood [None]

NARRATIVE: CASE EVENT DATE: 20210415
